FAERS Safety Report 24195858 (Version 1)
Quarter: 2024Q3

REPORT INFORMATION
  Report Type: Spontaneous
  Country: US (occurrence: US)
  Receive Date: 20240809
  Receipt Date: 20240809
  Transmission Date: 20241017
  Serious: Yes (Other)
  Sender: TAKEDA
  Company Number: US-TAKEDA-2024TUS078428

PATIENT
  Sex: Female
  Weight: 95 kg

DRUGS (4)
  1. HYQVIA [Suspect]
     Active Substance: HUMAN IMMUNOGLOBULIN G\HYALURONIDASE (HUMAN RECOMBINANT)
     Indication: Immunodeficiency common variable
     Dosage: 45 GRAM, 2/WEEK
     Route: 065
  2. CUTAQUIG [Suspect]
     Active Substance: HUMAN IMMUNOGLOBULIN G
     Indication: Immunodeficiency common variable
     Dosage: 20 GRAM, 1/WEEK
     Route: 058
  3. LEVOTHYROXINE [Concomitant]
     Active Substance: LEVOTHYROXINE\LEVOTHYROXINE SODIUM
     Dosage: UNK UNK, QD
     Route: 048
  4. PANTOPRAZOLE [Concomitant]
     Active Substance: PANTOPRAZOLE
     Dosage: UNK UNK, QD
     Route: 048

REACTIONS (15)
  - Pneumonia [Unknown]
  - Pneumococcal sepsis [Unknown]
  - Autoimmune haemolytic anaemia [Unknown]
  - Pulmonary arterial hypertension [Unknown]
  - Paranasal sinus discomfort [Unknown]
  - Sneezing [Unknown]
  - Sinusitis [Unknown]
  - Chronic rhinosinusitis with nasal polyps [Unknown]
  - Bronchitis [Unknown]
  - Pityriasis rosea [Unknown]
  - Blood albumin decreased [Unknown]
  - Varices oesophageal [Unknown]
  - Acute sinusitis [Unknown]
  - Cough [Unknown]
  - Pyrexia [Unknown]
